FAERS Safety Report 6593534-5 (Version None)
Quarter: 2010Q1

REPORT INFORMATION
  Report Type: 
  Country: None (occurrence: None)
  Receive Date: 20100222
  Receipt Date: 20090629
  Transmission Date: 20100710
  Serious: No
  Sender: FDA-Public Use
  Company Number: US-BRISTOL-MYERS SQUIBB COMPANY-14683270

PATIENT
  Age: 71 Year
  Sex: Female
  Weight: 92 kg

DRUGS (10)
  1. ORENCIA [Suspect]
     Indication: RHEUMATOID ARTHRITIS
     Dates: start: 20090601
  2. PREDNISONE [Concomitant]
     Dosage: REDUCED FROM 7.5MG TO 5MG
  3. METHOTREXATE [Concomitant]
     Dosage: METHOTREXATE INJECTION
  4. NEXIUM [Concomitant]
  5. METFORMIN [Concomitant]
  6. FOLIC ACID [Concomitant]
  7. VITAMIN E [Concomitant]
  8. VITAMIN D [Concomitant]
  9. ESTER-C [Concomitant]
  10. CYCLOBENZAPRINE [Concomitant]

REACTIONS (2)
  - CHEST PAIN [None]
  - DYSPEPSIA [None]
